FAERS Safety Report 5096721-0 (Version None)
Quarter: 2006Q3

REPORT INFORMATION
  Report Type: 
  Country: None (occurrence: None)
  Receive Date: 20060831
  Receipt Date: 20060822
  Transmission Date: 20061208
  Serious: Yes (Death)
  Sender: FDA-Public Use
  Company Number: TAP2006Q01469

PATIENT
  Age: 86 Year
  Sex: Male

DRUGS (9)
  1. LUPRON DEPOT-4 [Suspect]
     Indication: PROSTATE CANCER
     Dosage: 30 MG, 1 IN 4 M, INTRAMUSCULAR
     Route: 030
     Dates: start: 20050902, end: 20060420
  2. IMDUR [Concomitant]
  3. LASIX [Concomitant]
  4. ALDACTONE [Concomitant]
  5. INHIBACE [Concomitant]
  6. LANOXIN [Concomitant]
  7. NOVOPUROL (ALLOPURINOL) [Concomitant]
  8. COUMADIN [Concomitant]
  9. LIPITOR [Concomitant]

REACTIONS (1)
  - MYOCARDIAL INFARCTION [None]
